FAERS Safety Report 7859261-9 (Version None)
Quarter: 2011Q4

REPORT INFORMATION
  Report Type: 
  Country: None (occurrence: None)
  Receive Date: 20111027
  Receipt Date: 20111027
  Transmission Date: 20120403
  Serious: Yes (Life-Threatening, Other)
  Sender: FDA-Public Use
  Company Number: None

PATIENT
  Sex: Female
  Weight: 64.41 kg

DRUGS (1)
  1. CYMBALTA [Suspect]
     Indication: ANXIETY
     Dosage: 60 MG
     Route: 048

REACTIONS (9)
  - BLOOD PRESSURE INCREASED [None]
  - INTRAOCULAR PRESSURE INCREASED [None]
  - HEPATIC ENZYME INCREASED [None]
  - MUSCLE DISORDER [None]
  - NEPHROLITHIASIS [None]
  - BLOOD SODIUM ABNORMAL [None]
  - PARAESTHESIA [None]
  - HEPATIC FUNCTION ABNORMAL [None]
  - CHOLELITHIASIS [None]
